FAERS Safety Report 5721371-X (Version None)
Quarter: 2008Q2

REPORT INFORMATION
  Report Type: 
  Country: None (occurrence: None)
  Receive Date: 20080428
  Receipt Date: 20080428
  Transmission Date: 20081010
  Serious: Yes (Hospitalization)
  Sender: FDA-Public Use
  Company Number: None

PATIENT
  Age: 47 Year
  Sex: Male

DRUGS (5)
  1. SALSALATE [Suspect]
     Dosage: 1500MG BID PO
     Route: 048
  2. CARBIDOPA AND LEVODOPA [Suspect]
  3. VALPROIC ACID [Concomitant]
  4. CLONAZEPAM [Concomitant]
  5. TERAZOSIN HCL [Concomitant]

REACTIONS (6)
  - ATAXIA [None]
  - DRUG LEVEL INCREASED [None]
  - FATIGUE [None]
  - LETHARGY [None]
  - MENTAL STATUS CHANGES [None]
  - TINNITUS [None]
